FAERS Safety Report 9312175 (Version 2)
Quarter: 2013Q2

REPORT INFORMATION
  Report Type: Spontaneous
  Country: US (occurrence: US)
  Receive Date: 20130528
  Receipt Date: 20130612
  Transmission Date: 20140414
  Serious: Yes (Other)
  Sender: FDA-Public Use
  Company Number: US-UCBSA-086394

PATIENT
  Age: 3 Year
  Sex: Male

DRUGS (4)
  1. LACOSAMIDE [Suspect]
     Dosage: INITIAL LOADING DOSE-10 MG/KG, FOLLOWED BY 2 DOSES OF 4 MG/KG/DAY, INTERVALS NOT REPORTED
  2. PHENOBARBITAL [Concomitant]
  3. ZONISAMIDE [Concomitant]
  4. CLORAZEPATE [Concomitant]

REACTIONS (3)
  - Electroencephalogram abnormal [Not Recovered/Not Resolved]
  - Partial seizures with secondary generalisation [Unknown]
  - Partial seizures [Unknown]
